FAERS Safety Report 5800796-8 (Version None)
Quarter: 2008Q3

REPORT INFORMATION
  Report Type: 
  Country: None (occurrence: None)
  Receive Date: 20080703
  Receipt Date: 20080630
  Transmission Date: 20090109
  Serious: Yes (Other)
  Sender: FDA-Public Use
  Company Number: US-MERCK-0806USA09147

PATIENT
  Age: 60 Year
  Sex: Female
  Weight: 85 kg

DRUGS (15)
  1. ZOCOR [Suspect]
     Route: 048
     Dates: start: 20080101
  2. CELEBREX [Suspect]
     Indication: ARTHRITIS
     Route: 048
     Dates: end: 20080101
  3. CHANTIX [Suspect]
     Indication: EX-TOBACCO USER
     Route: 048
     Dates: start: 20080407
  4. QUINAPRIL HYDROCHLORIDE [Concomitant]
     Route: 065
  5. CETIRIZINE HYDROCHLORIDE [Concomitant]
     Route: 065
  6. NEFAZODONE HYDROCHLORIDE [Concomitant]
     Route: 065
  7. GABAPENTIN [Concomitant]
     Route: 065
  8. TIZANIDINE HYDROCHLORIDE [Concomitant]
     Route: 065
  9. TRAZODONE HYDROCHLORIDE [Concomitant]
     Route: 065
  10. VIVELLE [Concomitant]
     Route: 065
  11. CITRACAL [Concomitant]
     Route: 065
  12. VITAMINS (UNSPECIFIED) [Concomitant]
     Route: 065
  13. FLOVENT [Concomitant]
     Route: 065
  14. VENTOLIN [Concomitant]
  15. NASONEX [Concomitant]
     Route: 065

REACTIONS (10)
  - ABNORMAL DREAMS [None]
  - ARTHRITIS [None]
  - BLOOD CHOLESTEROL INCREASED [None]
  - CHEST PAIN [None]
  - CORONARY ARTERY OCCLUSION [None]
  - DRUG INEFFECTIVE [None]
  - ELECTROCARDIOGRAM ABNORMAL [None]
  - INSOMNIA [None]
  - IRRITABILITY [None]
  - RESTLESSNESS [None]
